FAERS Safety Report 21282787 (Version 1)
Quarter: 2022Q3

REPORT INFORMATION
  Report Type: Spontaneous
  Country: CA (occurrence: CA)
  Receive Date: 20220901
  Receipt Date: 20220901
  Transmission Date: 20221027
  Serious: Yes (Other)
  Sender: FDA-Public Use
  Company Number: CA-PFIZER INC-202200683800

PATIENT
  Age: 57 Year
  Sex: Female
  Weight: 55.8 kg

DRUGS (5)
  1. INLYTA [Suspect]
     Active Substance: AXITINIB
     Indication: Metastatic renal cell carcinoma
     Dosage: 5 MG, 2X/DAY
     Route: 048
  2. INLYTA [Suspect]
     Active Substance: AXITINIB
     Dosage: 5 MG
     Dates: start: 20220528
  3. INLYTA [Suspect]
     Active Substance: AXITINIB
     Dosage: 5 MG, 3X/DAY
     Route: 048
     Dates: start: 2022
  4. LOPERAMIDE HYDROCHLORIDE [Concomitant]
     Active Substance: LOPERAMIDE HYDROCHLORIDE
     Dosage: 2 MG, AS NEEDED
     Route: 048
  5. METOCLOPRAMIDE HYDROCHLORIDE [Concomitant]
     Active Substance: METOCLOPRAMIDE HYDROCHLORIDE
     Dosage: 10 MG, AS NEEDED, EVERY 4-6H

REACTIONS (9)
  - Blood thyroid stimulating hormone increased [Unknown]
  - Thyroxine increased [Unknown]
  - Off label use [Unknown]
  - Tumour pain [Unknown]
  - Fatigue [Unknown]
  - Increased appetite [Recovering/Resolving]
  - Jaw lesion excision [Recovering/Resolving]
  - Blood pressure systolic increased [Unknown]
  - Taste disorder [Recovering/Resolving]

NARRATIVE: CASE EVENT DATE: 20220101
